FAERS Safety Report 8602951-0 (Version None)
Quarter: 2012Q3

REPORT INFORMATION
  Report Type: 
  Country: None (occurrence: None)
  Receive Date: 20120817
  Receipt Date: 20120807
  Transmission Date: 20120928
  Serious: Yes (Other)
  Sender: FDA-Public Use
  Company Number: US-BRISTOL-MYERS SQUIBB COMPANY-16844508

PATIENT
  Age: 47 Year
  Sex: Female
  Weight: 90 kg

DRUGS (5)
  1. LAMOTRIGINE [Suspect]
  2. PRISTIQ [Suspect]
     Indication: BIPOLAR DISORDER
     Dosage: FORMULATION-PROLONGED RELEASE TAB
     Route: 048
     Dates: start: 20120413, end: 20120613
  3. ABILIFY [Suspect]
     Dosage: TAB
  4. XANAX [Suspect]
     Dosage: TAB. 1DF= HALF TAB
     Route: 048
  5. PRISTIQ [Suspect]
     Indication: DEPRESSION
     Dosage: FORMULATION-PROLONGED RELEASE TAB
     Route: 048
     Dates: start: 20120413, end: 20120613

REACTIONS (6)
  - HAEMORRHOIDAL HAEMORRHAGE [None]
  - DEPRESSED MOOD [None]
  - WEIGHT DECREASED [None]
  - DRUG INEFFECTIVE [None]
  - PANIC ATTACK [None]
  - IRRITABILITY [None]
